FAERS Safety Report 14403066 (Version 1)
Quarter: 2018Q1

REPORT INFORMATION
  Report Type: Spontaneous
  Country: US (occurrence: US)
  Receive Date: 20180117
  Receipt Date: 20180117
  Transmission Date: 20180509
  Serious: Yes (Other)
  Sender: FDA-Public Use
  Company Number: US-INTERCEPT-PMOCA2018000046

PATIENT

DRUGS (1)
  1. OCALIVA [Suspect]
     Active Substance: OBETICHOLIC ACID
     Indication: PRIMARY BILIARY CHOLANGITIS
     Dosage: 10 MG
     Route: 048
     Dates: start: 20161215

REACTIONS (3)
  - Hepatic cirrhosis [Unknown]
  - Drug ineffective [Not Recovered/Not Resolved]
  - Toe amputation [Unknown]
